FAERS Safety Report 25776407 (Version 1)
Quarter: 2025Q3

REPORT INFORMATION
  Report Type: Spontaneous
  Country: US (occurrence: US)
  Receive Date: 20250909
  Receipt Date: 20250909
  Transmission Date: 20251020
  Serious: No
  Sender: DOMPE FARMACEUTICI
  Company Number: US-FARMAPROD-202408-3093

PATIENT
  Sex: Female
  Weight: 81.65 kg

DRUGS (18)
  1. OXERVATE [Suspect]
     Active Substance: CENEGERMIN-BKBJ
     Indication: Neurotrophic keratopathy
     Route: 047
     Dates: start: 20221128
  2. OXERVATE [Suspect]
     Active Substance: CENEGERMIN-BKBJ
     Dates: start: 20240226, end: 20240413
  3. OXERVATE [Suspect]
     Active Substance: CENEGERMIN-BKBJ
     Dates: start: 20240510, end: 20240801
  4. OXERVATE [Suspect]
     Active Substance: CENEGERMIN-BKBJ
     Dates: start: 20240815
  5. BIOTIN-D [Concomitant]
  6. COENZYME Q10 [Concomitant]
     Active Substance: DIETARY SUPPLEMENT\UBIDECARENONE
  7. VITAMIN D-400 [Concomitant]
  8. CALCIUM [Concomitant]
     Active Substance: CALCIUM
  9. IPRATROPIUM BROMIDE [Concomitant]
     Active Substance: IPRATROPIUM BROMIDE
  10. EZETIMIBE [Concomitant]
     Active Substance: EZETIMIBE
  11. SIMVASTATIN [Concomitant]
     Active Substance: SIMVASTATIN
  12. VALACYCLOVIR [Concomitant]
     Active Substance: VALACYCLOVIR HYDROCHLORIDE
  13. ESTRADIOL-NORETHINDRONE ACETATE [Concomitant]
  14. LISINOPRIL [Concomitant]
     Active Substance: LISINOPRIL
  15. NOVOLOG [Concomitant]
     Active Substance: INSULIN ASPART
  16. XIIDRA [Concomitant]
     Active Substance: LIFITEGRAST
  17. AZASITE [Concomitant]
     Active Substance: AZITHROMYCIN MONOHYDRATE
  18. FLUOROMETHOLONE [Concomitant]
     Active Substance: FLUOROMETHOLONE

REACTIONS (1)
  - Off label use [Unknown]
